FAERS Safety Report 8041780-6 (Version None)
Quarter: 2012Q1

REPORT INFORMATION
  Report Type: 
  Country: None (occurrence: None)
  Receive Date: 20120112
  Receipt Date: 20111228
  Transmission Date: 20120608
  Serious: Yes (Death)
  Sender: FDA-Public Use
  Company Number: US-UCBSA-049262

PATIENT
  Age: 48 Year
  Sex: Female

DRUGS (6)
  1. COCAINE [Suspect]
     Route: 048
  2. QUETIAPINE [Suspect]
     Route: 048
  3. ALPRAZOLAM [Suspect]
     Route: 048
  4. BENZODIAZEPINE [Suspect]
     Route: 048
  5. ETHANOL [Suspect]
     Route: 048
  6. OPIOID [Suspect]
     Route: 048

REACTIONS (1)
  - COMPLETED SUICIDE [None]
